FAERS Safety Report 5867634-9 (Version None)
Quarter: 2008Q3

REPORT INFORMATION
  Report Type: 
  Country: None (occurrence: None)
  Receive Date: 20080902
  Receipt Date: 20080827
  Transmission Date: 20090109
  Serious: Yes (Death)
  Sender: FDA-Public Use
  Company Number: IT-AVENTIS-200814526EU

PATIENT
  Age: 73 Year
  Sex: Male

DRUGS (3)
  1. ENOXAPARIN SODIUM [Suspect]
     Route: 058
     Dates: start: 20080218, end: 20080218
  2. HAES-STREIL (PENTAMIDE) [Concomitant]
     Route: 042
     Dates: start: 20080218
  3. DOBUTAMINE HCL [Concomitant]
     Route: 042
     Dates: start: 20080218

REACTIONS (5)
  - CEREBRAL THROMBOSIS [None]
  - HYPOTENSION [None]
  - PUPILS UNEQUAL [None]
  - RESPIRATORY FAILURE [None]
  - UNRESPONSIVE TO STIMULI [None]
